FAERS Safety Report 5977288-9 (Version None)
Quarter: 2008Q4

REPORT INFORMATION
  Report Type: 
  Country: None (occurrence: None)
  Receive Date: 20081203
  Receipt Date: 20081120
  Transmission Date: 20090506
  Serious: Yes (Other)
  Sender: FDA-Public Use
  Company Number: PHHY2008NL29033

PATIENT
  Sex: Female

DRUGS (1)
  1. VOLTAREN [Suspect]
     Indication: PAIN
     Dosage: 75 MG

REACTIONS (5)
  - ABASIA [None]
  - HUMERUS FRACTURE [None]
  - INSOMNIA [None]
  - MONOPLEGIA [None]
  - PAIN IN EXTREMITY [None]
